FAERS Safety Report 5691846-0 (Version None)
Quarter: 2008Q2

REPORT INFORMATION
  Report Type: 
  Country: None (occurrence: None)
  Receive Date: 20080402
  Receipt Date: 20080321
  Transmission Date: 20081010
  Serious: Yes (Death, Hospitalization, Other)
  Sender: FDA-Public Use
  Company Number: JP-AMGEN-US267533

PATIENT
  Age: 69 Year
  Sex: Male

DRUGS (6)
  1. ENBREL [Suspect]
     Indication: RHEUMATOID ARTHRITIS
     Dosage: DOSAGE IS UNKNOWN
     Route: 058
     Dates: start: 20070701, end: 20071114
  2. DIOVAN [Concomitant]
     Route: 065
  3. SELBEX [Concomitant]
     Route: 065
  4. DEPAS [Concomitant]
     Route: 065
  5. AMARYL [Concomitant]
     Route: 065
  6. PREDNISOLONE [Concomitant]
     Route: 065

REACTIONS (4)
  - ARTERY DISSECTION [None]
  - CYANOSIS [None]
  - FAT EMBOLISM [None]
  - RENAL FAILURE CHRONIC [None]
